FAERS Safety Report 6266011-9 (Version None)
Quarter: 2009Q3

REPORT INFORMATION
  Report Type: 
  Country: None (occurrence: None)
  Receive Date: 20090708
  Receipt Date: 20090624
  Transmission Date: 20100115
  Serious: Yes (Death)
  Sender: FDA-Public Use
  Company Number: 1000007035

PATIENT

DRUGS (1)
  1. DINOPROSTONE (DINOPROSTONE) (SUPPOSITORY) [Suspect]
     Dosage: 10 MG, TRANSPLACENTAL
     Route: 064
     Dates: start: 20090101

REACTIONS (3)
  - INCORRECT DRUG ADMINISTRATION DURATION [None]
  - INTRA-UTERINE DEATH [None]
  - MATERNAL DRUGS AFFECTING FOETUS [None]
